FAERS Safety Report 8468709 (Version 5)
Quarter: 2012Q4

REPORT INFORMATION
  Report Type: 
  Country: US (occurrence: US)
  Receive Date: 20120320
  Receipt Date: 20121012
  Transmission Date: 20130627
  Serious: Yes (Hospitalization, Other)
  Sender: FDA-Public Use
  Company Number: US-FRI-1000029099

PATIENT
  Age: 65 Year
  Sex: Female

DRUGS (4)
  1. BYSTOLIC [Suspect]
     Indication: HYPERTENSION
     Dosage: 10 mg
     Dates: start: 201105, end: 20120205
  2. NORVASC [Suspect]
     Indication: HYPERTENSION
     Dates: start: 201202
  3. BABY ASPIRIN [Concomitant]
  4. LISINOPRIL [Concomitant]
     Indication: HYPERTENSION
     Dates: end: 201202

REACTIONS (27)
  - Cardiac failure [Not Recovered/Not Resolved]
  - Cardiac arrest [Recovered/Resolved]
  - Sinus bradycardia [Recovered/Resolved]
  - Syncope [Recovered/Resolved]
  - Respiratory arrest [Recovered/Resolved]
  - Suicidal ideation [Recovering/Resolving]
  - Dizziness [Recovered/Resolved]
  - Chest discomfort [Recovered/Resolved]
  - Urinary incontinence [Recovered/Resolved]
  - Fatigue [Not Recovered/Not Resolved]
  - Depression [Not Recovered/Not Resolved]
  - Anxiety [Not Recovered/Not Resolved]
  - Constipation [Recovered/Resolved]
  - Abdominal pain [Recovered/Resolved]
  - Diarrhoea [Recovered/Resolved]
  - Hypokalaemia [Recovered/Resolved]
  - Dyspnoea [Not Recovered/Not Resolved]
  - Wrist surgery [None]
  - Fall [None]
  - Device malfunction [None]
  - Blood calcium decreased [None]
  - Left ventricular hypertrophy [None]
  - Mitral valve incompetence [None]
  - Tricuspid valve incompetence [None]
  - Right ventricular systolic pressure increased [None]
  - Aortic arteriosclerosis [None]
  - Heart rate increased [None]
